FAERS Safety Report 8382608-4 (Version None)
Quarter: 2012Q2

REPORT INFORMATION
  Report Type: 
  Country: None (occurrence: None)
  Receive Date: 20120524
  Receipt Date: 20120515
  Transmission Date: 20120825
  Serious: Yes (Hospitalization, Other)
  Sender: FDA-Public Use
  Company Number: CN-JNJFOC-20110703693

PATIENT
  Sex: Female

DRUGS (3)
  1. CLONAZEPAM [Suspect]
     Indication: SCHIZOPHRENIA
     Route: 048
  2. RISPERDAL CONSTA [Suspect]
     Indication: SCHIZOPHRENIA
     Route: 030
     Dates: start: 20110623, end: 20110623
  3. VALPROATE SODIUM [Suspect]
     Indication: SCHIZOPHRENIA
     Route: 048

REACTIONS (6)
  - NEPHRITIS [None]
  - OEDEMA [None]
  - GOITRE [None]
  - LOWER EXTREMITY MASS [None]
  - GENERALISED OEDEMA [None]
  - LOCAL SWELLING [None]
